FAERS Safety Report 15154091 (Version 1)
Quarter: 2018Q3

REPORT INFORMATION
  Report Type: Report from Study
  Country: AR (occurrence: AR)
  Receive Date: 20180717
  Receipt Date: 20180717
  Transmission Date: 20181010
  Serious: Yes (Hospitalization, Other)
  Sender: FDA-Public Use
  Company Number: AR-SAKK-2018SA151708AA

PATIENT
  Age: 69 Year
  Sex: Male

DRUGS (8)
  1. LICUAGEN [Concomitant]
     Dosage: UNK UNK, UNK
     Route: 065
  2. DILATREND [Concomitant]
     Active Substance: CARVEDILOL
     Dosage: 20 MG, UNK
     Route: 065
  3. LOTRIAL [Concomitant]
     Active Substance: ENALAPRIL MALEATE
     Dosage: UNK UNK, UNK
     Route: 065
  4. METFORMIN [Concomitant]
     Active Substance: METFORMIN HYDROCHLORIDE
     Dosage: 1000 MG, BID
     Route: 065
  5. ASPIRINETAS [Concomitant]
     Active Substance: ASPIRIN
     Dosage: UNK UNK, UNK
     Route: 065
  6. INSULIN GLARGINE [Suspect]
     Active Substance: INSULIN GLARGINE
     Indication: TYPE 2 DIABETES MELLITUS
     Dosage: 8 IU, QD
     Route: 058
     Dates: start: 20180419
  7. NEUROTIOCT [Concomitant]
     Dosage: 600 MG, UNK
     Route: 065
  8. LOTRIAL D [Concomitant]
     Dosage: 10 MG, UNK
     Route: 065

REACTIONS (3)
  - Cerebrovascular accident [Recovered/Resolved with Sequelae]
  - Hypertension [Recovered/Resolved]
  - Diabetes mellitus [Recovered/Resolved]

NARRATIVE: CASE EVENT DATE: 20180517
